FAERS Safety Report 6568954-5 (Version None)
Quarter: 2010Q1

REPORT INFORMATION
  Report Type: 
  Country: None (occurrence: None)
  Receive Date: 20100128
  Receipt Date: 20100113
  Transmission Date: 20100710
  Serious: Yes (Life-Threatening)
  Sender: FDA-Public Use
  Company Number: 2010000206

PATIENT
  Age: 64 Year
  Sex: Male

DRUGS (12)
  1. ERLOTINIB HYDROCHLORIDE [Suspect]
     Indication: LUNG ADENOCARCINOMA
     Dosage: 150 MG QD, ORAL
     Route: 048
     Dates: start: 20090827
  2. LANSOPRAZOLE [Concomitant]
  3. MEDICON (DEXTROMETHORPHAN HYDROBROMIDE) [Concomitant]
  4. LOXONIN (LOXOPROFEN SODIUM) [Concomitant]
  5. MYONAL (EPERISONE HYDROCHLORIDE) [Concomitant]
  6. OXYCONTIN [Concomitant]
  7. OXINORM (ORGOTEIN) [Concomitant]
  8. DEPAS (ETIZOLAM) [Concomitant]
  9. PREDNISOLONE [Concomitant]
  10. BACTRIM [Concomitant]
  11. ONEALFA [Concomitant]
  12. WARFARIN POTASSIUM (WARFARIN POTASSIUM) [Concomitant]

REACTIONS (3)
  - MALIGNANT NEOPLASM PROGRESSION [None]
  - PULMONARY EMBOLISM [None]
  - RASH [None]
